FAERS Safety Report 14705206 (Version 4)
Quarter: 2018Q3

REPORT INFORMATION
  Report Type: Report from Study
  Country: US (occurrence: US)
  Receive Date: 20180402
  Receipt Date: 20180820
  Transmission Date: 20181010
  Serious: Yes (Other)
  Sender: FDA-Public Use
  Company Number: US-SA-2018SA074233

PATIENT
  Age: 40 Year
  Sex: Female

DRUGS (1)
  1. ELIGLUSTAT. [Suspect]
     Active Substance: ELIGLUSTAT
     Indication: GAUCHER^S DISEASE
     Dosage: 84 MG,QD
     Route: 048
     Dates: start: 20180117

REACTIONS (7)
  - Anxiety [Unknown]
  - Nasopharyngitis [Unknown]
  - Contusion [Unknown]
  - Arthralgia [Unknown]
  - Feeling hot [Unknown]
  - Bundle branch block right [Unknown]
  - Osteopenia [Unknown]
